FAERS Safety Report 4315098-9 (Version None)
Quarter: 2004Q1

REPORT INFORMATION
  Report Type: 
  Country: None (occurrence: None)
  Receive Date: 20040310
  Receipt Date: 20040305
  Transmission Date: 20041129
  Serious: Yes (Other)
  Sender: FDA-Public Use
  Company Number: BR-ROCHE-361110

PATIENT
  Age: 24 Year
  Sex: Male
  Weight: 80 kg

DRUGS (2)
  1. ACCUTANE [Suspect]
     Indication: ACNE
     Route: 048
     Dates: start: 20030218, end: 20030613
  2. ACCUTANE [Suspect]
     Route: 048
     Dates: start: 20030614, end: 20030708

REACTIONS (2)
  - ABSCESS [None]
  - THERAPEUTIC RESPONSE DECREASED [None]
